FAERS Safety Report 21004101 (Version 2)
Quarter: 2022Q4

REPORT INFORMATION
  Report Type: Spontaneous
  Country: US (occurrence: None)
  Receive Date: 20220624
  Receipt Date: 20221007
  Transmission Date: 20230113
  Serious: No
  Sender: FDA-Public Use
  Company Number: 2022A217144

PATIENT
  Age: 66 Year
  Sex: Female
  Weight: 76.2 kg

DRUGS (7)
  1. LYNPARZA [Suspect]
     Active Substance: OLAPARIB
     Indication: Invasive ductal breast carcinoma
     Dosage: 150 MG MORNING AND 150 MG NIGHT
     Route: 048
     Dates: start: 202203
  2. LYNPARZA [Suspect]
     Active Substance: OLAPARIB
     Indication: Invasive ductal breast carcinoma
     Dosage: 150 MG IN THE MORNING AND 300 MG AT NIGHT
     Route: 048
  3. LYNPARZA [Suspect]
     Active Substance: OLAPARIB
     Indication: Invasive ductal breast carcinoma
     Dosage: 300 MG MORNING AND 300 MG AT NIGHT
     Route: 048
     Dates: start: 20220314, end: 20220615
  4. LYNPARZA [Suspect]
     Active Substance: OLAPARIB
     Indication: Invasive ductal breast carcinoma
     Dosage: 150 MG IN THE MORNING AND 300 MG AT NIGHT FOR A WEEK AND A HALF
     Route: 048
  5. LYNPARZA [Suspect]
     Active Substance: OLAPARIB
     Indication: Invasive ductal breast carcinoma
     Dosage: 150 MG MORNING AND 150 MG NIGHT
     Route: 048
  6. ANASTROZOLE [Concomitant]
     Active Substance: ANASTROZOLE
     Indication: Neoplasm malignant
     Route: 065
     Dates: start: 20211210
  7. LEXAPRO [Concomitant]
     Active Substance: ESCITALOPRAM OXALATE
     Indication: Anxiety
     Route: 065
     Dates: start: 20210505

REACTIONS (13)
  - Adverse drug reaction [Unknown]
  - Feeling abnormal [Unknown]
  - Malaise [Unknown]
  - Depression [Unknown]
  - Body dysmorphic disorder [Unknown]
  - Bone pain [Not Recovered/Not Resolved]
  - Pain [Not Recovered/Not Resolved]
  - Pain in extremity [Not Recovered/Not Resolved]
  - Joint injury [Not Recovered/Not Resolved]
  - Arthralgia [Not Recovered/Not Resolved]
  - Lethargy [Not Recovered/Not Resolved]
  - Blood pressure measurement [Unknown]
  - Fatigue [Not Recovered/Not Resolved]

NARRATIVE: CASE EVENT DATE: 20220411
